FAERS Safety Report 6668201-X (Version None)
Quarter: 2010Q2

REPORT INFORMATION
  Report Type: 
  Country: None (occurrence: None)
  Receive Date: 20100405
  Receipt Date: 20100405
  Transmission Date: 20101027
  Serious: Yes (Other)
  Sender: FDA-Public Use
  Company Number: None

PATIENT
  Sex: Male
  Weight: 24.9478 kg

DRUGS (1)
  1. SINGULAIR [Suspect]
     Indication: ASTHMA
     Dosage: 4MG CHEWABLE 1X DAILY BEDTIME BY MOUTH
     Route: 048
     Dates: start: 20080101, end: 20100101

REACTIONS (8)
  - ABNORMAL BEHAVIOUR [None]
  - ABNORMAL DREAMS [None]
  - ANXIETY [None]
  - EAR INFECTION [None]
  - FEAR [None]
  - HALLUCINATION [None]
  - HALLUCINATION, VISUAL [None]
  - TREMOR [None]
